FAERS Safety Report 4947649-5 (Version None)
Quarter: 2006Q1

REPORT INFORMATION
  Report Type: 
  Country: None (occurrence: None)
  Receive Date: 20060314
  Receipt Date: 20060303
  Transmission Date: 20060701
  Serious: Yes (Other)
  Sender: FDA-Public Use
  Company Number: 2006032642

PATIENT
  Age: 68 Year
  Sex: Female
  Weight: 102.0593 kg

DRUGS (5)
  1. NEURONTIN [Suspect]
     Indication: NEURALGIA
     Dosage: 900 MG (300 MG, 3 IN 1 D)
     Dates: start: 20060101
  2. CELEBREX [Suspect]
     Indication: ARTHRALGIA
     Dosage: 200 MG
     Dates: start: 20060224
  3. PREDNISONE TAB [Suspect]
     Indication: DEAFNESS
     Dates: start: 20060302
  4. PAXIL [Concomitant]
  5. GLUCOSAMINE W/CHONDROITIN SULFATES (ASCORIC ACID, CHONDROITIN SULFATE, [Concomitant]

REACTIONS (3)
  - DEAFNESS NEUROSENSORY [None]
  - DEAFNESS UNILATERAL [None]
  - EPISTAXIS [None]
